FAERS Safety Report 6156890-8 (Version None)
Quarter: 2009Q2

REPORT INFORMATION
  Report Type: 
  Country: None (occurrence: None)
  Receive Date: 20090416
  Receipt Date: 20090407
  Transmission Date: 20091009
  Serious: Yes (Other)
  Sender: FDA-Public Use
  Company Number: SE-ASTRAZENECA-2009SE01441

PATIENT
  Sex: Female

DRUGS (6)
  1. SELOKEN [Suspect]
     Indication: SEDATIVE THERAPY
     Dosage: HALF TABLET WITH 3-5 H INTERVALS
     Route: 048
     Dates: start: 19950101
  2. SELOKEN ZOC [Suspect]
     Indication: SEDATIVE THERAPY
     Route: 048
     Dates: start: 19950101
  3. LEVOTHYROXINE SODIUM [Concomitant]
     Dosage: 125 UG,112 UG? EVERY OTHER DAY
  4. HYDROKORTON [Concomitant]
  5. PRASTERON [Concomitant]
  6. KALCIPOS D [Concomitant]

REACTIONS (5)
  - DRUG DEPENDENCE [None]
  - HEADACHE [None]
  - MENTAL DISORDER [None]
  - MYALGIA [None]
  - PALPITATIONS [None]
